FAERS Safety Report 6431211-1 (Version None)
Quarter: 2009Q4

REPORT INFORMATION
  Report Type: 
  Country: None (occurrence: None)
  Receive Date: 20091106
  Receipt Date: 20091102
  Transmission Date: 20100525
  Serious: Yes (Death, Disabling)
  Sender: FDA-Public Use
  Company Number: US-CELGENEUS-163-21880-09091380

PATIENT
  Sex: Male

DRUGS (5)
  1. REVLIMID [Suspect]
     Indication: MULTIPLE MYELOMA
     Route: 048
     Dates: start: 20090901, end: 20090901
  2. DEXAMETHASONE [Concomitant]
     Route: 065
     Dates: start: 20090801, end: 20090901
  3. VITAMIN B-12 [Concomitant]
     Indication: VITAMIN B12 DEFICIENCY
     Route: 065
  4. COMBIVENT [Concomitant]
     Route: 065
  5. SPIRONOLACTONE [Concomitant]
     Indication: TRANSGENDER HORMONAL THERAPY
     Route: 065

REACTIONS (2)
  - DYSPNOEA [None]
  - MULTIPLE MYELOMA [None]
